FAERS Safety Report 9117371 (Version 1)
Quarter: 2013Q1

REPORT INFORMATION
  Report Type: Spontaneous
  Country: GB (occurrence: GB)
  Receive Date: 20130225
  Receipt Date: 20130225
  Transmission Date: 20140127
  Serious: Yes (Death, Hospitalization)
  Sender: FDA-Public Use
  Company Number: GB-ACCORD-016477

PATIENT
  Age: 60 Year
  Sex: Male
  Weight: 77 kg

DRUGS (30)
  1. GEMCITABINE [Suspect]
     Indication: NON-SMALL CELL LUNG CANCER STAGE IIIA
     Dosage: OVER 30 MINS
     Route: 042
     Dates: start: 20120806, end: 20121015
  2. MORPHINE SULPHATE [Concomitant]
     Dosage: WHEN NECESSARY
  3. AMIODARONE [Concomitant]
  4. NORADRENALINE [Concomitant]
  5. CASPOFUNGIN [Concomitant]
     Route: 042
  6. ACYCLOVIR [Concomitant]
     Route: 042
  7. FUROSEMIDE [Concomitant]
     Route: 042
  8. TAZOCIN [Concomitant]
     Route: 042
  9. CO-CODAMOL [Concomitant]
     Dosage: 8/500MG, WHEN NECESSARY
  10. SALBUTAMOL [Concomitant]
     Dosage: 2 PUFFS WHEN NECESSARY
     Route: 055
  11. LANSOPRAZOLE [Concomitant]
  12. CO-TRIMOXAZOLE [Concomitant]
     Route: 042
     Dates: start: 20130117
  13. NYSTATIN [Concomitant]
  14. TIOTROPIUM [Concomitant]
     Dosage: 1 PUFF
     Route: 055
  15. HYDROCORTISONE [Concomitant]
     Route: 042
  16. NAPROXEN [Concomitant]
  17. FENTANYL [Concomitant]
     Dosage: 0-500 MCG PER HOUR
  18. DALTEPARIN [Concomitant]
     Route: 058
  19. CLARITHROMYCIN [Concomitant]
     Route: 042
  20. CARBOPLATIN [Concomitant]
     Indication: NON-SMALL CELL LUNG CANCER STAGE IIIA
     Dosage: OVER 60 MINUTES
     Route: 042
  21. DIAMORPHINE [Concomitant]
     Dosage: 0.5-1MG WHEN NECESSARY
  22. ESOMEPRAZOLE [Concomitant]
     Route: 042
  23. EPOPROSTENOL [Concomitant]
  24. NORMAL SALINE [Concomitant]
  25. AMOXICILLIN\CLAVULANATE POTASSIUM [Concomitant]
     Dosage: FOR 7 DAYS
     Dates: start: 20130110
  26. CARBOCISTEINE [Concomitant]
  27. GAVISCON [Concomitant]
     Dosage: 5-10ML FOUR TIMES DAILY
  28. MIDAZOLAM [Concomitant]
     Dosage: 1-8MG PER HOUR
  29. MEROPENEM [Concomitant]
     Route: 042
  30. PROPOFOL [Concomitant]
     Dosage: 0-30 ML PER HOUR

REACTIONS (6)
  - Pulmonary fibrosis [Fatal]
  - Thrombocytopenia [Not Recovered/Not Resolved]
  - Renal failure acute [Not Recovered/Not Resolved]
  - Pneumonia [Not Recovered/Not Resolved]
  - Acute respiratory distress syndrome [Not Recovered/Not Resolved]
  - Respiratory failure [Not Recovered/Not Resolved]
